FAERS Safety Report 10354798 (Version 3)
Quarter: 2014Q4

REPORT INFORMATION
  Report Type: Spontaneous
  Country: US (occurrence: None)
  Receive Date: 20140721
  Receipt Date: 20141107
  Transmission Date: 20150528
  Serious: Yes (Hospitalization)
  Sender: FDA-Public Use
  Company Number: GAM-244-14-US

PATIENT
  Age: 36 Year
  Sex: Female
  Weight: 132 kg

DRUGS (40)
  1. SIMVASTATIN. [Concomitant]
     Active Substance: SIMVASTATIN
  2. FUROSEMIDE. [Concomitant]
     Active Substance: FUROSEMIDE
  3. SIMVASTATIN. [Concomitant]
     Active Substance: SIMVASTATIN
  4. FAMOTIDINE. [Concomitant]
     Active Substance: FAMOTIDINE
  5. LORAZEPAM. [Concomitant]
     Active Substance: LORAZEPAM
  6. ACETAMINOPHEN. [Concomitant]
     Active Substance: ACETAMINOPHEN
  7. CYCLOBENZAPRINE [Concomitant]
     Active Substance: CYCLOBENZAPRINE
  8. FLUTICASONE PROPIONATE. [Concomitant]
     Active Substance: FLUTICASONE PROPIONATE
  9. NICOTINE. [Concomitant]
     Active Substance: NICOTINE
  10. FLUTICASONE PROPIONATE. [Concomitant]
     Active Substance: FLUTICASONE PROPIONATE
  11. BUTALBITAL AND CAFFEINE [Concomitant]
  12. NEBIVOLOL [Concomitant]
     Active Substance: NEBIVOLOL
  13. GABAPENTIN. [Concomitant]
     Active Substance: GABAPENTIN
  14. NYSTATIN. [Concomitant]
     Active Substance: NYSTATIN
  15. CETIRIZINE [Concomitant]
     Active Substance: CETIRIZINE HYDROCHLORIDE
  16. ESCITALOPRAM OXALATE. [Concomitant]
     Active Substance: ESCITALOPRAM OXALATE
  17. CLONIDINE. [Concomitant]
     Active Substance: CLONIDINE
  18. LISINOPRIL. [Concomitant]
     Active Substance: LISINOPRIL
  19. AMPICILLIN [Concomitant]
     Active Substance: AMPICILLIN
  20. CARBAMAZEPINE. [Concomitant]
     Active Substance: CARBAMAZEPINE
  21. ONDANSETRON [Concomitant]
     Active Substance: ONDANSETRON
  22. ESTROGEN [Concomitant]
     Active Substance: ESTRONE\SUS SCROFA OVARY
  23. TIOTROPIUM BROMIDE [Concomitant]
     Active Substance: TIOTROPIUM BROMIDE
  24. CIPROFLOXACIN AND DEXAMETHASONE [Concomitant]
  25. METFORMIN [Concomitant]
     Active Substance: METFORMIN HYDROCHLORIDE
  26. BOTOX [Concomitant]
     Active Substance: ONABOTULINUMTOXINA
  27. ALBUTEROL SULPHATE [Concomitant]
     Active Substance: ALBUTEROL
  28. OMEPRAZOLE. [Concomitant]
     Active Substance: OMEPRAZOLE
  29. SOLIFENACIN SUCCINATE [Concomitant]
     Active Substance: SOLIFENACIN SUCCINATE
  30. ACETAMINOPHEN AND HYDROCODONE BITARTRATE [Concomitant]
  31. OCTAGAM IMMUNE GLOBULIN (HUMAN) [Suspect]
     Active Substance: HUMAN IMMUNOGLOBULIN G
     Indication: IMMUNODEFICIENCY COMMON VARIABLE
     Dosage: 52 G (1X 4 / WEEKS)?
     Dates: start: 20140428, end: 20140428
  32. DICYCLOMINE [Concomitant]
     Active Substance: DICYCLOMINE HYDROCHLORIDE
  33. SUCRALFATE. [Concomitant]
     Active Substance: SUCRALFATE
  34. MONTELUKAST [Concomitant]
     Active Substance: MONTELUKAST SODIUM
  35. NAPROXEN. [Concomitant]
     Active Substance: NAPROXEN
  36. CEFALEXIN [Concomitant]
     Active Substance: CEPHALEXIN
  37. LORATADIN [Concomitant]
     Active Substance: LORATADINE
  38. IBUPROFEN. [Concomitant]
     Active Substance: IBUPROFEN
  39. TRAMADOL [Concomitant]
     Active Substance: TRAMADOL
  40. NITROFURANTOIN. [Concomitant]
     Active Substance: NITROFURANTOIN

REACTIONS (17)
  - Headache [None]
  - Dyspnoea [None]
  - Hypoaesthesia [None]
  - Chest pain [None]
  - Asthenia [None]
  - Gait disturbance [None]
  - Vision blurred [None]
  - Movement disorder [None]
  - Balance disorder [None]
  - Urinary incontinence [None]
  - Chest discomfort [None]
  - Paraesthesia [None]
  - Fall [None]
  - Deep vein thrombosis [None]
  - Pulmonary embolism [None]
  - Muscle spasms [None]
  - Peripheral swelling [None]

NARRATIVE: CASE EVENT DATE: 20140509
